FAERS Safety Report 7445202-5 (Version None)
Quarter: 2011Q2

REPORT INFORMATION
  Report Type: 
  Country: None (occurrence: None)
  Receive Date: 20110429
  Receipt Date: 20110421
  Transmission Date: 20111010
  Serious: Yes (Hospitalization, Other)
  Sender: FDA-Public Use
  Company Number: US-JNJFOC-20110303650

PATIENT
  Sex: Female

DRUGS (9)
  1. LEVAQUIN [Suspect]
     Indication: URINARY TRACT INFECTION
     Route: 048
  2. FLUOXETINE [Concomitant]
     Indication: DEPRESSION
     Route: 065
  3. METHYLPREDNISOLONE [Suspect]
     Indication: INFLAMMATION
     Route: 048
  4. PREDNISONE [Suspect]
     Indication: STEROID THERAPY
     Route: 048
  5. DOXYCYCLINE [Concomitant]
     Indication: ANTIBIOTIC THERAPY
     Route: 065
  6. CIPROFLOXACIN [Suspect]
     Indication: ANTIBIOTIC THERAPY
     Route: 048
  7. LUNESTA [Concomitant]
     Indication: SLEEP DISORDER THERAPY
     Route: 065
  8. SIMVASTATIN [Concomitant]
     Route: 065
  9. AZITHROMYCIN [Concomitant]
     Indication: ANTIBIOTIC THERAPY
     Route: 065

REACTIONS (2)
  - LIGAMENT RUPTURE [None]
  - TENOSYNOVITIS STENOSANS [None]
